FAERS Safety Report 13289242 (Version 2)
Quarter: 2017Q1

REPORT INFORMATION
  Report Type: Spontaneous
  Country: DE (occurrence: DE)
  Receive Date: 20170303
  Receipt Date: 20170330
  Transmission Date: 20170428
  Serious: Yes (Other)
  Sender: FDA-Public Use
  Company Number: DE-ROCHE-1897668

PATIENT
  Sex: Female
  Weight: 46 kg

DRUGS (13)
  1. VINBLASTIN [Concomitant]
     Active Substance: VINBLASTINE
     Indication: TRANSITIONAL CELL CARCINOMA
     Dosage: 2 CYCLES IN TOTAL
     Route: 065
     Dates: start: 201610, end: 201612
  2. ADRIAMYCIN [Concomitant]
     Active Substance: DOXORUBICIN HYDROCHLORIDE
     Indication: TRANSITIONAL CELL CARCINOMA
     Dosage: 2 CYCLES IN TOTAL
     Route: 065
     Dates: start: 201610, end: 201612
  3. GEMCITABINE [Concomitant]
     Active Substance: GEMCITABINE\GEMCITABINE HYDROCHLORIDE
     Dosage: 6 CYCLES IN TOTAL
     Route: 065
     Dates: start: 201502, end: 201507
  4. CARBOPLATIN. [Concomitant]
     Active Substance: CARBOPLATIN
     Dosage: 6 CYCLES IN TOTAL
     Route: 065
     Dates: start: 201502, end: 201507
  5. VINFLUNINE [Concomitant]
     Active Substance: VINFLUNINE
     Indication: TRANSITIONAL CELL CARCINOMA
     Dosage: 12 CYCLES IN TOTAL
     Route: 065
     Dates: start: 201601, end: 201606
  6. AMLODIPIN [Concomitant]
     Active Substance: AMLODIPINE BESYLATE
     Indication: HYPERTENSION
     Route: 048
     Dates: start: 2014
  7. INEGY [Concomitant]
     Active Substance: EZETIMIBE\SIMVASTATIN
     Indication: HYPERTENSION
     Dosage: 10/20 MG
     Route: 048
     Dates: start: 2014
  8. CARBOPLATIN. [Concomitant]
     Active Substance: CARBOPLATIN
     Indication: TRANSITIONAL CELL CARCINOMA
     Dosage: 6 CYCLES IN TOTAL
     Route: 065
     Dates: start: 201404, end: 201409
  9. METHOTREXATE. [Concomitant]
     Active Substance: METHOTREXATE
     Indication: TRANSITIONAL CELL CARCINOMA
     Dosage: 2 CYCLES IN TOTAL
     Route: 065
     Dates: start: 201610, end: 201612
  10. CLOPIDOGREL [Concomitant]
     Active Substance: CLOPIDOGREL BISULFATE
     Indication: CORONARY ARTERY DISEASE
     Route: 048
     Dates: start: 2014
  11. GEMCITABINE [Concomitant]
     Active Substance: GEMCITABINE\GEMCITABINE HYDROCHLORIDE
     Indication: TRANSITIONAL CELL CARCINOMA
     Dosage: 6 CYCLES IN TOTAL
     Route: 065
     Dates: start: 201404, end: 201409
  12. ATEZOLIZUMAB [Suspect]
     Active Substance: ATEZOLIZUMAB
     Indication: TRANSITIONAL CELL CARCINOMA
     Route: 042
     Dates: start: 20161213
  13. LOSARTAN. [Concomitant]
     Active Substance: LOSARTAN
     Indication: HYPERTENSION
     Route: 048
     Dates: start: 2014

REACTIONS (2)
  - Dyspnoea [Recovered/Resolved]
  - Nervous system disorder [Recovered/Resolved]
